FAERS Safety Report 6175201-5 (Version None)
Quarter: 2009Q2

REPORT INFORMATION
  Report Type: 
  Country: None (occurrence: None)
  Receive Date: 20090430
  Receipt Date: 20090114
  Transmission Date: 20091009
  Serious: No
  Sender: FDA-Public Use
  Company Number: US-ASTRAZENECA-2008UW28265

PATIENT
  Age: 11721 Day
  Sex: Female
  Weight: 101.2 kg

DRUGS (19)
  1. NEXIUM [Suspect]
     Route: 048
  2. CRESTOR [Concomitant]
     Route: 048
  3. ABILIFY [Concomitant]
  4. AMITRIPTLINE HYDROCHLORIDE TAB [Concomitant]
  5. CYCLOBENZAPRINE [Concomitant]
  6. DIAMOX [Concomitant]
  7. DILTIAZEM HCL [Concomitant]
  8. DILTIAZEM [Concomitant]
  9. EFFEXOR XR [Concomitant]
  10. FENTANYL [Concomitant]
  11. LIDODERM [Concomitant]
  12. LORAZEPAM [Concomitant]
  13. LYRICA [Concomitant]
  14. METOCLOPRAMIDE HCL [Concomitant]
  15. OXYCODONE HCL AND ACETAMINOPHEN [Concomitant]
  16. PEPCID AC [Concomitant]
  17. PHENERGAN [Concomitant]
  18. PREVACID [Concomitant]
  19. PROMETHAZINE [Concomitant]

REACTIONS (2)
  - ASPIRATION [None]
  - VOMITING [None]
